FAERS Safety Report 19279057 (Version 1)
Quarter: 2021Q2

REPORT INFORMATION
  Report Type: Spontaneous
  Country: US (occurrence: US)
  Receive Date: 20210520
  Receipt Date: 20210520
  Transmission Date: 20210717
  Serious: Yes (Hospitalization, Other)
  Sender: FDA-Public Use
  Company Number: US-TEVA-2021-US-1912394

PATIENT
  Age: 63 Year
  Sex: Male

DRUGS (8)
  1. PREDNISONE. [Suspect]
     Active Substance: PREDNISONE
     Dosage: TAPERING FROM 30 MG AT HOSPITAL DISCHARGE TO 10 MG BY 4 WEEKS POST?TRANSPLANT
     Route: 065
  2. TACROLIMUS. [Suspect]
     Active Substance: TACROLIMUS
     Dosage: 12?HOUR TACROLIMUS TROUGH TARGET WAS REDUCED TO A LOWER GOAL LEVEL OF 4?6 NG/ML.
     Route: 065
  3. TACROLIMUS. [Suspect]
     Active Substance: TACROLIMUS
     Indication: IMMUNOSUPPRESSANT DRUG THERAPY
     Dosage: TARGETING GOAL LEVELS OF 8?12 NG/ML
     Route: 065
  4. MYCOPHENOLATE [Suspect]
     Active Substance: MYCOPHENOLIC ACID
     Indication: IMMUNOSUPPRESSANT DRUG THERAPY
     Dosage: LOW?DOSE MYCOPHENOLATE (500MG OF MYCOPHENOLATE MOFETIL EQUIVALENTS/DAY)
     Route: 065
     Dates: start: 2012, end: 201309
  5. ANTI?THYMOCYTE GLOBULIN [Suspect]
     Active Substance: THYMOCYTE IMMUNE GLOBULIN NOS
     Indication: IMMUNOSUPPRESSANT DRUG THERAPY
     Dosage: INDUCTION THERAPY
     Route: 065
  6. PREDNISONE. [Suspect]
     Active Substance: PREDNISONE
     Indication: IMMUNOSUPPRESSANT DRUG THERAPY
     Dosage: TAPERING FROM 30 MG AT HOSPITAL DISCHARGE TO 10 MG BY 4 WEEKS POST?TRANSPLANT
     Route: 065
  7. MYCOPHENOLATE SODIUM [Suspect]
     Active Substance: MYCOPHENOLATE SODIUM
     Indication: IMMUNOSUPPRESSANT DRUG THERAPY
     Dosage: 1440 MILLIGRAM DAILY;
     Route: 065
     Dates: end: 2011
  8. IMMUNOGLOBULIN [Concomitant]
     Indication: PRODUCT USED FOR UNKNOWN INDICATION
     Route: 065

REACTIONS (3)
  - BK virus infection [Not Recovered/Not Resolved]
  - Polyomavirus-associated nephropathy [Recovered/Resolved]
  - Transitional cell carcinoma [Unknown]

NARRATIVE: CASE EVENT DATE: 201108
